FAERS Safety Report 7349692-8 (Version None)
Quarter: 2011Q1

REPORT INFORMATION
  Report Type: 
  Country: None (occurrence: None)
  Receive Date: 20110302
  Receipt Date: 20110219
  Transmission Date: 20110831
  Serious: Yes (Hospitalization)
  Sender: FDA-Public Use
  Company Number: TCI2011A00986

PATIENT
  Age: 73 Year
  Sex: Male

DRUGS (12)
  1. GLYBURIDE [Suspect]
     Indication: TYPE 2 DIABETES MELLITUS
     Dosage: 5 MG 1 IN 1 DPER ORAL
     Route: 048
     Dates: end: 20101217
  2. (ANGIOTENSIN II ANTAGONISTS) (ANTIOTENSIN II ANTAGONISTS) [Concomitant]
  3. (HMG COA REDUCTASE INHIBITORS) (HMG COA REDUCTASE INHIBITORS) [Concomitant]
  4. ACTOS [Suspect]
     Indication: TYPE 2 DIABETES MELLITUS
     Dosage: 30 MG (30 MG,1 D) PER ORAL
     Route: 048
     Dates: start: 20100302, end: 20101217
  5. GASTER D (FAMOTIDINE) [Concomitant]
  6. PLAVIX [Concomitant]
  7. METHYCOBAL (MECOBALAMIN) [Concomitant]
  8. MEXITIL [Concomitant]
  9. MYONAL (EPERISONE HYDROCHLORIDE) [Concomitant]
  10. VONTROL [Concomitant]
  11. CALCIUM CHANNEL BLOCKERS [Concomitant]
  12. TICLOPIDINE HCL [Concomitant]

REACTIONS (5)
  - CEREBELLAR INFARCTION [None]
  - VOMITING [None]
  - DISEASE RECURRENCE [None]
  - DIZZINESS [None]
  - HYPOGLYCAEMIA [None]
